FAERS Safety Report 8523184-2 (Version None)
Quarter: 2012Q3

REPORT INFORMATION
  Report Type: 
  Country: None (occurrence: None)
  Receive Date: 20120713
  Receipt Date: 20120713
  Transmission Date: 20120928
  Serious: Yes (Hospitalization)
  Sender: FDA-Public Use
  Company Number: None

PATIENT
  Sex: Female

DRUGS (14)
  1. SPIRIVA [Concomitant]
  2. ALDACTONE [Concomitant]
  3. CALRITIN [Concomitant]
  4. ALBUTEROL [Concomitant]
  5. PRAVACHOL [Concomitant]
  6. LISINOPRIL [Concomitant]
  7. LOPRESSOR [Concomitant]
  8. CYMBACPRT INHALER [Concomitant]
  9. DAPSONE [Suspect]
     Indication: IMPAIRED HEALING
     Dosage: 200 MG ONCE A DAY PO
     Route: 048
     Dates: start: 20120324, end: 20120417
  10. PROZAC [Concomitant]
  11. LASIX [Concomitant]
  12. ACTAPRES [Concomitant]
  13. LORATADINE [Concomitant]
  14. PROVENTIL GENTLEHALER [Concomitant]

REACTIONS (3)
  - WHITE BLOOD CELL COUNT DECREASED [None]
  - FLUID INTAKE REDUCED [None]
  - APHAGIA [None]
